FAERS Safety Report 23791363 (Version 2)
Quarter: 2025Q3

REPORT INFORMATION
  Report Type: Report from Study
  Country: CA (occurrence: CA)
  Receive Date: 20240429
  Receipt Date: 20250701
  Transmission Date: 20251020
  Serious: Yes (Other)
  Sender: SANDOZ
  Company Number: CA-SANDOZ-SDZ2024CA043169

PATIENT
  Sex: Female

DRUGS (1)
  1. ERELZI [Suspect]
     Active Substance: ETANERCEPT-SZZS
     Indication: Juvenile idiopathic arthritis
     Dosage: 50 MG, QW
     Route: 058
     Dates: start: 20231117

REACTIONS (6)
  - Immunosuppression [Unknown]
  - Illness [Unknown]
  - Anxiety [Unknown]
  - Crying [Unknown]
  - Injection site pain [Unknown]
  - Product substitution issue [Unknown]
